FAERS Safety Report 9387855 (Version 2)
Quarter: 2013Q3

REPORT INFORMATION
  Report Type: Spontaneous
  Country: IT (occurrence: None)
  Receive Date: 20130703
  Receipt Date: 20130717
  Transmission Date: 20140515
  Serious: Yes (Hospitalization)
  Sender: FDA-Public Use
  Company Number: AE-SPE-2013-018

PATIENT
  Age: 78 Year
  Sex: Male
  Weight: 45 kg

DRUGS (4)
  1. GIASION [Suspect]
     Indication: OROPHARYNGEAL PAIN
     Route: 048
     Dates: start: 20121001, end: 20121001
  2. DICLOFENAC [Suspect]
     Indication: NECK PAIN
     Route: 048
     Dates: start: 20120925, end: 20121001
  3. TAMSULOSINA HCL (TAMSULOSIN HYDROCHLORIDE) [Concomitant]
  4. GAVISCON [Concomitant]

REACTIONS (5)
  - Abdominal pain [None]
  - Nausea [None]
  - Presyncope [None]
  - Hyperhidrosis [None]
  - Cardiac murmur [None]
